FAERS Safety Report 6297378-3 (Version None)
Quarter: 2009Q3

REPORT INFORMATION
  Report Type: 
  Country: None (occurrence: None)
  Receive Date: 20090804
  Receipt Date: 20090804
  Transmission Date: 20100115
  Serious: No
  Sender: FDA-Public Use
  Company Number: None

PATIENT
  Age: 65 Year
  Sex: Male

DRUGS (2)
  1. CEPHALEXIN [Suspect]
     Indication: SPLINTER
     Dosage: 500 MG QID PO
     Route: 048
     Dates: start: 20090523, end: 20090601
  2. CEPHALEXIN [Suspect]
     Indication: VASCULAR OPERATION
     Dosage: 500 MG QID PO
     Route: 048
     Dates: start: 20090523, end: 20090601

REACTIONS (2)
  - ERYTHEMA [None]
  - RASH [None]
